FAERS Safety Report 5131664-5 (Version None)
Quarter: 2006Q4

REPORT INFORMATION
  Report Type: 
  Country: None (occurrence: None)
  Receive Date: 20061020
  Receipt Date: 20061010
  Transmission Date: 20070319
  Serious: Yes (Other)
  Sender: FDA-Public Use
  Company Number: DE-BRISTOL-MYERS SQUIBB COMPANY-13545439

PATIENT
  Age: 53 Year
  Sex: Female

DRUGS (4)
  1. CETUXIMAB [Suspect]
     Indication: RECTAL CANCER
  2. CAPECITABINE [Suspect]
     Indication: RECTAL CANCER
  3. IRINOTECAN HCL [Suspect]
     Indication: RECTAL CANCER
  4. RADIOTHERAPY [Suspect]
     Indication: RECTAL CANCER

REACTIONS (4)
  - DIARRHOEA [None]
  - NAUSEA [None]
  - TRANSAMINASES INCREASED [None]
  - VOMITING [None]
